FAERS Safety Report 10516656 (Version 1)
Quarter: 2014Q4

REPORT INFORMATION
  Report Type: Spontaneous
  Country: US (occurrence: US)
  Receive Date: 20141014
  Receipt Date: 20141014
  Transmission Date: 20150528
  Serious: Yes (Other)
  Sender: FDA-Public Use
  Company Number: US-PURDUE-USA-2014-0118103

PATIENT
  Age: 20 Year
  Sex: Female

DRUGS (2)
  1. OXYCONTIN [Suspect]
     Active Substance: OXYCODONE HYDROCHLORIDE
     Indication: DRUG ABUSE
     Route: 055
  2. ALCOHOL. [Suspect]
     Active Substance: ALCOHOL
     Indication: ALCOHOL ABUSE
     Route: 048

REACTIONS (2)
  - Substance abuse [Unknown]
  - Victim of sexual abuse [Unknown]

NARRATIVE: CASE EVENT DATE: 2010
